FAERS Safety Report 17588083 (Version 1)
Quarter: 2020Q1

REPORT INFORMATION
  Report Type: Spontaneous
  Country: US (occurrence: US)
  Receive Date: 20200327
  Receipt Date: 20200327
  Transmission Date: 20200409
  Serious: No
  Sender: FDA-Public Use
  Company Number: US-MTPC-MTDA2020-0048329

PATIENT
  Sex: Male

DRUGS (1)
  1. RADICAVA [Suspect]
     Active Substance: EDARAVONE
     Indication: AMYOTROPHIC LATERAL SCLEROSIS
     Dosage: STANDARD DOSING 60 MILLIGRAM / 20 ML QD,  FOR 10 DAYS OUT OF 14, THEN 14 DAYS OFF
     Route: 065
     Dates: start: 201709

REACTIONS (3)
  - Therapeutic response unexpected [Unknown]
  - Muscular weakness [Unknown]
  - Aphonia [Unknown]

NARRATIVE: CASE EVENT DATE: 2019
